FAERS Safety Report 14259733 (Version 2)
Quarter: 2017Q4

REPORT INFORMATION
  Report Type: Spontaneous
  Country: DE (occurrence: DE)
  Receive Date: 20171207
  Receipt Date: 20171213
  Transmission Date: 20180321
  Serious: Yes (Death, Hospitalization, Other)
  Sender: FDA-Public Use
  Company Number: DE-PFIZER INC-2017521792

PATIENT
  Age: 53 Year
  Sex: Male

DRUGS (15)
  1. LORAZEPAM. [Suspect]
     Active Substance: LORAZEPAM
     Dosage: 2 MG, UNK
     Route: 042
     Dates: start: 20160802, end: 20160802
  2. RISPERDAL CONSTA [Suspect]
     Active Substance: RISPERIDONE
     Dosage: 50 MG, UNK
     Route: 030
     Dates: start: 20160801
  3. RISPERDAL CONSTA [Suspect]
     Active Substance: RISPERIDONE
     Dosage: 37.5 MG, UNK
     Route: 030
     Dates: start: 20160721, end: 20160721
  4. RISPERIDONE. [Suspect]
     Active Substance: RISPERIDONE
     Indication: SCHIZOPHRENIA
     Dosage: DOSE WAS SUCCESSIVELY
     Route: 048
     Dates: start: 201512
  5. RISPERIDONE. [Suspect]
     Active Substance: RISPERIDONE
     Dosage: UNK
     Route: 048
     Dates: end: 2016
  6. BENPERIDOL [Suspect]
     Active Substance: BENPERIDOL
     Dosage: UNK
     Route: 065
     Dates: start: 201511, end: 201512
  7. BENPERIDOL [Suspect]
     Active Substance: BENPERIDOL
     Dosage: UNK
     Route: 065
     Dates: start: 2016, end: 2016
  8. DIAZEPAM. [Concomitant]
     Active Substance: DIAZEPAM
     Dosage: UNK
     Route: 065
     Dates: start: 201511
  9. LORAZEPAM. [Suspect]
     Active Substance: LORAZEPAM
     Dosage: 2 MG, 1X/DAY
     Route: 048
     Dates: start: 20160525
  10. RISPERDAL CONSTA [Suspect]
     Active Substance: RISPERIDONE
     Indication: SCHIZOPHRENIA
     Dosage: UNK
     Route: 030
     Dates: start: 2016, end: 2016
  11. CLEXANE [Suspect]
     Active Substance: ENOXAPARIN SODIUM
     Dosage: 0.4 ML, UNK
     Route: 058
  12. RISPERIDONE. [Suspect]
     Active Substance: RISPERIDONE
     Dosage: UNK
     Route: 048
     Dates: start: 201605, end: 20160606
  13. QUETIAPINE. [Suspect]
     Active Substance: QUETIAPINE
     Dosage: 200 MG, 1X/DAY
     Route: 065
     Dates: start: 2016, end: 2016
  14. QUETIAPINE. [Suspect]
     Active Substance: QUETIAPINE
     Dosage: UNK
     Route: 065
     Dates: start: 2016, end: 201605
  15. LORAZEPAM. [Suspect]
     Active Substance: LORAZEPAM
     Dosage: 3 MG, UNK
     Route: 042
     Dates: start: 20160801, end: 20160801

REACTIONS (16)
  - Refusal of treatment by patient [Unknown]
  - Aggression [Not Recovered/Not Resolved]
  - Irritability [Not Recovered/Not Resolved]
  - Pneumonia [Unknown]
  - Myocardial infarction [Fatal]
  - Psychotic symptom [Not Recovered/Not Resolved]
  - Urinary retention [Unknown]
  - General physical health deterioration [Unknown]
  - Diet refusal [Unknown]
  - Epilepsy [Unknown]
  - Haemorrhage [Unknown]
  - Inappropriate schedule of drug administration [Unknown]
  - Poisoning [Fatal]
  - Neuroleptic malignant syndrome [Recovered/Resolved]
  - Off label use [Unknown]
  - Urinary tract infection [Unknown]

NARRATIVE: CASE EVENT DATE: 2016
